FAERS Safety Report 5944031-9 (Version None)
Quarter: 2008Q4

REPORT INFORMATION
  Report Type: 
  Country: None (occurrence: None)
  Receive Date: 20081106
  Receipt Date: 20081031
  Transmission Date: 20090506
  Serious: Yes (Hospitalization, Other)
  Sender: FDA-Public Use
  Company Number: US-ROXANE LABORATORIES, INC.-2008-RO-00108RO

PATIENT
  Sex: Female
  Weight: 64 kg

DRUGS (10)
  1. PREDNISONE TAB [Suspect]
     Indication: SARCOIDOSIS
  2. VALIUM [Suspect]
     Indication: SARCOIDOSIS
     Dates: start: 19930101
  3. ADVAIR DISKUS 100/50 [Suspect]
     Indication: DRUG USE FOR UNKNOWN INDICATION
     Dosage: 1000MG
  4. MAXAIR [Suspect]
     Indication: DRUG USE FOR UNKNOWN INDICATION
  5. ALBUTEROL [Suspect]
     Indication: DRUG USE FOR UNKNOWN INDICATION
  6. STEROID [Suspect]
     Indication: DRUG USE FOR UNKNOWN INDICATION
  7. LIPITOR [Concomitant]
  8. SINGULAIR [Concomitant]
  9. EPIPEN [Concomitant]
  10. INHALERS [Concomitant]

REACTIONS (12)
  - BACK PAIN [None]
  - COUGH [None]
  - DIZZINESS [None]
  - INSOMNIA [None]
  - JOINT STIFFNESS [None]
  - NAUSEA [None]
  - OXYGEN SATURATION ABNORMAL [None]
  - PALPITATIONS [None]
  - PSYCHOMOTOR HYPERACTIVITY [None]
  - SARCOIDOSIS [None]
  - SINUS OPERATION [None]
  - TREMOR [None]
